FAERS Safety Report 5114216-2 (Version None)
Quarter: 2006Q3

REPORT INFORMATION
  Report Type: 
  Country: None (occurrence: None)
  Receive Date: 20060925
  Receipt Date: 20060918
  Transmission Date: 20061208
  Serious: Yes (Hospitalization)
  Sender: FDA-Public Use
  Company Number: NL-ROXANE LABORATORIES, INC-2006-BP-10933RO

PATIENT
  Sex: Male

DRUGS (2)
  1. HEROIN [Suspect]
  2. PHENOBARBITAL [Concomitant]
     Indication: DRUG WITHDRAWAL SYNDROME NEONATAL

REACTIONS (4)
  - AGITATION [None]
  - DRUG EXPOSURE DURING PREGNANCY [None]
  - DRUG WITHDRAWAL SYNDROME NEONATAL [None]
  - HYPERTONIA [None]
